FAERS Safety Report 5939664-X (Version None)
Quarter: 2008Q4

REPORT INFORMATION
  Report Type: 
  Country: None (occurrence: None)
  Receive Date: 20081030
  Receipt Date: 20081030
  Transmission Date: 20090506
  Serious: Yes (Other)
  Sender: FDA-Public Use
  Company Number: None

PATIENT
  Age: 76 Year
  Sex: Female
  Weight: 75.7507 kg

DRUGS (3)
  1. ATIVAN [Suspect]
     Indication: AGITATION
     Dosage: 1 DOSE 1MG IVP X1
     Route: 042
  2. ATIVAN [Suspect]
     Indication: CONFUSIONAL STATE
     Dosage: 1 DOSE 1MG IVP X1
     Route: 042
  3. PHENERGAN [Suspect]
     Indication: NAUSEA
     Dosage: 12.5MG IVPB X1
     Route: 042

REACTIONS (5)
  - AGITATION [None]
  - BLOOD PRESSURE DECREASED [None]
  - CONFUSIONAL STATE [None]
  - DEPRESSED LEVEL OF CONSCIOUSNESS [None]
  - HEART RATE DECREASED [None]
